FAERS Safety Report 16284526 (Version 2)
Quarter: 2019Q3

REPORT INFORMATION
  Report Type: Report from Study
  Country: None (occurrence: US)
  Receive Date: 20190508
  Receipt Date: 20190903
  Transmission Date: 20191004
  Serious: Yes (Hospitalization)
  Sender: FDA-Public Use
  Company Number: US-ABBVIE-19K-163-2772245-00

PATIENT
  Sex: Female

DRUGS (1)
  1. HUMIRA [Suspect]
     Active Substance: ADALIMUMAB
     Indication: RHEUMATOID ARTHRITIS
     Route: 058

REACTIONS (4)
  - Rheumatoid arthritis [Recovering/Resolving]
  - Joint effusion [Recovering/Resolving]
  - Joint range of motion decreased [Unknown]
  - Dysstasia [Unknown]

NARRATIVE: CASE EVENT DATE: 2019
